FAERS Safety Report 26115693 (Version 1)
Quarter: 2025Q4

REPORT INFORMATION
  Report Type: Spontaneous
  Country: EU (occurrence: EU)
  Receive Date: 20251203
  Receipt Date: 20251203
  Transmission Date: 20260119
  Serious: Yes (Hospitalization, Other)
  Sender: Kenvue
  Company Number: None

PATIENT
  Age: 21 Year

DRUGS (3)
  1. MINOXIDIL [Suspect]
     Active Substance: MINOXIDIL
     Indication: Alopecia areata
     Dosage: 20MG/ML IN AN ETHANOL/PROPYLENE GLYCOL SOLUTION APPLIED TO THE AFFECTED AREAS OF THE SCALP 2 TIMES DAILY, 1ML PER APPLICATION)
  2. LEVOTHYROXINE SODIUM [Concomitant]
     Active Substance: LEVOTHYROXINE SODIUM
     Indication: Autoimmune thyroiditis
     Dosage: 50 MICROGRAM
     Route: 065
  3. ETHINYL ESTRADIOL\LEVONORGESTREL [Concomitant]
     Active Substance: ETHINYL ESTRADIOL\LEVONORGESTREL
     Indication: Oral contraception
     Dosage: EVONORGESTREL 0.01 MG/ETHINYLESTRADIOL 0.02

REACTIONS (2)
  - Hepatic failure [Recovered/Resolved]
  - Product use in unapproved indication [Unknown]
